FAERS Safety Report 25213631 (Version 2)
Quarter: 2025Q2

REPORT INFORMATION
  Report Type: Spontaneous
  Country: GR (occurrence: GR)
  Receive Date: 20250418
  Receipt Date: 20250523
  Transmission Date: 20250716
  Serious: Yes (Disabling)
  Sender: BAYER HEALTHCARE PHARMACEUTICALS INC.
  Company Number: GR-BAYER-2025A051006

PATIENT
  Age: 47 Year
  Sex: Female

DRUGS (1)
  1. AVELOX [Suspect]
     Active Substance: MOXIFLOXACIN HYDROCHLORIDE
     Indication: Viral upper respiratory tract infection
     Dosage: 400 MG, QD
     Route: 048

REACTIONS (1)
  - Iris transillumination defect [Not Recovered/Not Resolved]

NARRATIVE: CASE EVENT DATE: 20230101
